FAERS Safety Report 15728984 (Version 3)
Quarter: 2019Q1

REPORT INFORMATION
  Report Type: Spontaneous
  Country: US (occurrence: US)
  Receive Date: 20181217
  Receipt Date: 20190102
  Transmission Date: 20190417
  Serious: Yes (Other)
  Sender: FDA-Public Use
  Company Number: US-PFIZER INC-2018501551

PATIENT
  Age: 44 Year
  Sex: Female

DRUGS (3)
  1. DILANTIN [Suspect]
     Active Substance: PHENYTOIN
     Indication: FOCAL DYSCOGNITIVE SEIZURES
     Dosage: 300 MG, 1X/DAY (100 MG 3 PILLS AT NIGHT)
  2. DILANTIN [Suspect]
     Active Substance: PHENYTOIN
     Indication: PARTIAL SEIZURES
  3. DILANTIN [Suspect]
     Active Substance: PHENYTOIN
     Indication: PARTIAL SEIZURES

REACTIONS (4)
  - Malabsorption [Unknown]
  - Condition aggravated [Unknown]
  - Partial seizures [Unknown]
  - Drug ineffective [Unknown]
